FAERS Safety Report 7057676-2 (Version None)
Quarter: 2010Q4

REPORT INFORMATION
  Report Type: 
  Country: None (occurrence: None)
  Receive Date: 20101022
  Receipt Date: 20101013
  Transmission Date: 20110411
  Serious: Yes (Other)
  Sender: FDA-Public Use
  Company Number: BR-PFIZER INC-2010129886

PATIENT
  Age: 51 Year
  Sex: Female
  Weight: 63 kg

DRUGS (10)
  1. CHAMPIX [Suspect]
     Indication: TOBACCO USER
     Dosage: 1MG, EVERY 12 HOURS
     Route: 048
     Dates: start: 20101005
  2. CHAMPIX [Suspect]
     Dosage: 1 MG, 2X/DAY (EVERY 12 HOURS)
     Route: 048
     Dates: start: 20101001
  3. ALPRAZOLAM [Concomitant]
     Indication: POOR QUALITY SLEEP
     Dosage: 0.5 MG UNK
     Dates: start: 20090901, end: 20100401
  4. ALPRAZOLAM [Concomitant]
     Dosage: 0.25MG,UNK
     Dates: start: 20100401, end: 20101007
  5. METFORMIN [Concomitant]
     Indication: DIABETES MELLITUS
     Dosage: UNK
     Dates: start: 20090901
  6. PANTOPRAZOLE SODIUM [Concomitant]
     Indication: GASTRITIS
     Dosage: UNK
     Dates: start: 20090901
  7. SIMVASTATIN [Concomitant]
     Indication: BLOOD CHOLESTEROL INCREASED
     Dosage: 20 MG, UNK
     Dates: start: 20090901
  8. PERINDOPRIL [Concomitant]
     Indication: HYPERTENSION
     Dosage: UNK
     Dates: start: 20090901
  9. ATENOLOL [Concomitant]
     Indication: HYPERTENSION
     Dosage: 50 MG, UNK
     Dates: start: 20000101
  10. AMLODIPINE BESILATE [Concomitant]
     Indication: HYPERTENSION
     Dosage: 25 MG, UNK
     Dates: start: 20090901

REACTIONS (3)
  - ASTHENIA [None]
  - CONFUSIONAL STATE [None]
  - NAUSEA [None]
